FAERS Safety Report 13241612 (Version 1)
Quarter: 2017Q1

REPORT INFORMATION
  Report Type: Spontaneous
  Country: US (occurrence: US)
  Receive Date: 20170216
  Receipt Date: 20170216
  Transmission Date: 20170428
  Serious: No
  Sender: FDA-Public Use
  Company Number: US-MYLANLABS-2016M1030114

PATIENT
  Sex: Male
  Weight: 24.49 kg

DRUGS (1)
  1. EPINEPHRINE. [Suspect]
     Active Substance: EPINEPHRINE
     Indication: OFF LABEL USE
     Dosage: 0.3 MG, UNK

REACTIONS (1)
  - Drug prescribing error [Unknown]
